FAERS Safety Report 7965018-0 (Version None)
Quarter: 2011Q4

REPORT INFORMATION
  Report Type: 
  Country: None (occurrence: None)
  Receive Date: 20111206
  Receipt Date: 20111206
  Transmission Date: 20120403
  Serious: No
  Sender: FDA-Public Use
  Company Number: None

PATIENT
  Sex: Female

DRUGS (1)
  1. COPAXONE [Suspect]
     Dosage: 20 MG DAILY SUBCUTANEOUSLY
     Route: 058
     Dates: start: 20111101, end: 20111118

REACTIONS (1)
  - DRUG HYPERSENSITIVITY [None]
